FAERS Safety Report 6180932-7 (Version None)
Quarter: 2009Q2

REPORT INFORMATION
  Report Type: 
  Country: None (occurrence: None)
  Receive Date: 20090430
  Receipt Date: 20090225
  Transmission Date: 20091009
  Serious: No
  Sender: FDA-Public Use
  Company Number: 274440

PATIENT
  Age: 76 Year
  Sex: Female
  Weight: 59 kg

DRUGS (5)
  1. LUCENTIS [Suspect]
     Indication: MACULAR DEGENERATION
     Dosage: INTRAVITREAL
     Dates: start: 20081215
  2. AVASTIN [Suspect]
     Indication: MACULAR DEGENERATION
  3. TENORMIN [Concomitant]
  4. ZETIA [Concomitant]
  5. LOTREL (AMLODIPINE BESYLATE, BENAZEPRIL HYDROCHLORIDE) [Concomitant]

REACTIONS (2)
  - DIZZINESS [None]
  - READING DISORDER [None]
